FAERS Safety Report 7656029-3 (Version None)
Quarter: 2011Q3

REPORT INFORMATION
  Report Type: 
  Country: None (occurrence: None)
  Receive Date: 20110804
  Receipt Date: 20110729
  Transmission Date: 20111222
  Serious: Yes (Other)
  Sender: FDA-Public Use
  Company Number: US-PURDUE-USA-2011-0065705

PATIENT
  Sex: Male

DRUGS (3)
  1. OXYCONTIN [Suspect]
     Indication: PAIN
     Dosage: 160 MG, Q12H
     Route: 048
  2. HYDROMORPHONE HCL [Concomitant]
     Indication: BREAKTHROUGH PAIN
  3. PERCOCET [Concomitant]
     Indication: BREAKTHROUGH PAIN

REACTIONS (5)
  - OESOPHAGEAL HAEMORRHAGE [None]
  - INADEQUATE ANALGESIA [None]
  - KNEE ARTHROPLASTY [None]
  - DRUG INEFFECTIVE [None]
  - PNEUMONIA [None]
